FAERS Safety Report 8613974 (Version 3)
Quarter: 2014Q1

REPORT INFORMATION
  Report Type: Spontaneous
  Country: US (occurrence: US)
  Receive Date: 20120614
  Receipt Date: 20140129
  Transmission Date: 20141002
  Serious: Yes (Other)
  Sender: FDA-Public Use
  Company Number: US-ASTRAZENECA-2012SE36410

PATIENT
  Age: 479 Month
  Sex: Female

DRUGS (10)
  1. NEXIUM [Suspect]
     Indication: GASTROOESOPHAGEAL REFLUX DISEASE
     Route: 048
     Dates: start: 20050301
  2. TYLENOL [Concomitant]
     Dosage: DAILY AS NEEDED
  3. LISINOPRIL [Concomitant]
  4. LORATADINE [Concomitant]
  5. KEPPRA [Concomitant]
  6. LYRICA [Concomitant]
  7. HYDROCHLOROTHIAZIDE [Concomitant]
  8. FOLIC ACID [Concomitant]
  9. CYMBALTA [Concomitant]
  10. GABAPENTIN [Concomitant]

REACTIONS (6)
  - Convulsion [Unknown]
  - Osteoporosis [Unknown]
  - Arthritis [Unknown]
  - Lower limb fracture [Unknown]
  - Vitamin D deficiency [Unknown]
  - Depression [Unknown]
